FAERS Safety Report 23474160 (Version 1)
Quarter: 2024Q1

REPORT INFORMATION
  Report Type: Report from Study
  Country: CA (occurrence: CA)
  Receive Date: 20240204
  Receipt Date: 20240204
  Transmission Date: 20240410
  Serious: Yes (Other)
  Sender: FDA-Public Use
  Company Number: CA-EXELIXIS-CABO-23059521

PATIENT
  Sex: Male

DRUGS (3)
  1. CABOMETYX [Suspect]
     Active Substance: CABOZANTINIB S-MALATE
     Indication: Hepatocellular carcinoma
     Dosage: 60 MG, QD
     Route: 048
     Dates: start: 20200929
  2. SORAFENIB [Concomitant]
     Active Substance: SORAFENIB
  3. TENOFOVIR [Concomitant]
     Active Substance: TENOFOVIR

REACTIONS (1)
  - Malignant neoplasm progression [Unknown]
